FAERS Safety Report 22280041 (Version 1)
Quarter: 2023Q2

REPORT INFORMATION
  Report Type: Spontaneous
  Country: US (occurrence: US)
  Receive Date: 20230503
  Receipt Date: 20230503
  Transmission Date: 20230722
  Serious: No
  Sender: FDA-Public Use
  Company Number: US-PFIZER INC-PV202300078480

PATIENT
  Age: 51 Year
  Sex: Male

DRUGS (1)
  1. XELJANZ [Suspect]
     Active Substance: TOFACITINIB CITRATE
     Indication: Rheumatoid arthritis

REACTIONS (6)
  - Musculoskeletal stiffness [Unknown]
  - Arthralgia [Unknown]
  - Fatigue [Unknown]
  - Inflammatory pain [Unknown]
  - Back pain [Unknown]
  - Arthropathy [Unknown]
